FAERS Safety Report 23100374 (Version 1)
Quarter: 2023Q4

REPORT INFORMATION
  Report Type: Spontaneous
  Country: US (occurrence: US)
  Receive Date: 20231024
  Receipt Date: 20231024
  Transmission Date: 20240110
  Serious: Yes (Hospitalization)
  Sender: FDA-Public Use
  Company Number: US-drreddys-SPO/USA/23/0180073

PATIENT
  Age: 68 Year
  Sex: Male

DRUGS (2)
  1. CLOZAPINE [Suspect]
     Active Substance: CLOZAPINE
     Indication: Product used for unknown indication
     Dosage: MORNING 100 MG AND EVENING 50 MG
     Route: 048
  2. CLOZAPINE [Suspect]
     Active Substance: CLOZAPINE
     Dosage: MORNING 100 MG AND EVENING 50 MG
     Route: 048

REACTIONS (3)
  - Schizophrenia [Unknown]
  - Mental status changes [Unknown]
  - Pyrexia [Unknown]
